FAERS Safety Report 12880945 (Version 1)
Quarter: 2016Q4

REPORT INFORMATION
  Report Type: Spontaneous
  Country: US (occurrence: US)
  Receive Date: 20161024
  Receipt Date: 20161024
  Transmission Date: 20170207
  Serious: Yes (Other)
  Sender: FDA-Public Use
  Company Number: None

PATIENT
  Age: 68 Year
  Sex: Female
  Weight: 75.6 kg

DRUGS (7)
  1. VERAPAMIL HCL SR [Concomitant]
     Active Substance: VERAPAMIL HYDROCHLORIDE
  2. PHYSULLUM HUSK [Concomitant]
  3. HYOSCYAMINE. [Suspect]
     Active Substance: HYOSCYAMINE
     Indication: ABDOMINAL PAIN
     Dosage: ?          QUANTITY:30 TABLET(S);?
     Route: 060
     Dates: start: 20160418, end: 20160519
  4. OMEPRAZOLE. [Concomitant]
     Active Substance: OMEPRAZOLE
  5. MULTIPLE VITAMIN [Concomitant]
     Active Substance: VITAMINS
  6. DELZICOL [Concomitant]
     Active Substance: MESALAMINE
  7. VITAMIN D [Concomitant]
     Active Substance: CHOLECALCIFEROL

REACTIONS (10)
  - Fall [None]
  - Product quality issue [None]
  - Muscular weakness [None]
  - Visual impairment [None]
  - Muscle disorder [None]
  - Dizziness [None]
  - Arthralgia [None]
  - Pain in extremity [None]
  - Swelling face [None]
  - Acne [None]

NARRATIVE: CASE EVENT DATE: 20160615
